FAERS Safety Report 20015686 (Version 1)
Quarter: 2021Q4

REPORT INFORMATION
  Report Type: Spontaneous
  Country: US (occurrence: None)
  Receive Date: 20211101
  Receipt Date: 20211101
  Transmission Date: 20220303
  Serious: Yes (Other)
  Sender: FDA-Public Use
  Company Number: None

PATIENT
  Age: 71 Year
  Sex: Male
  Weight: 76.5 kg

DRUGS (14)
  1. CAPECITABINE [Suspect]
     Active Substance: CAPECITABINE
     Indication: Rectal cancer
     Dosage: FREQUENCY : TWICE A DAY;?
     Route: 048
     Dates: start: 20201202
  2. MAGNESIUM [Concomitant]
     Active Substance: MAGNESIUM
  3. FAMOTIDINE [Concomitant]
     Active Substance: FAMOTIDINE
  4. ANTI-DIARRHEAL [Concomitant]
     Active Substance: LOPERAMIDE HYDROCHLORIDE
  5. LORAZEPAM [Concomitant]
     Active Substance: LORAZEPAM
  6. MELOXICAM [Concomitant]
     Active Substance: MELOXICAM
  7. POTASSIUM [Concomitant]
     Active Substance: POTASSIUM
  8. LORATADINE [Concomitant]
     Active Substance: LORATADINE
  9. AMLODIPINE [Concomitant]
     Active Substance: AMLODIPINE BESYLATE
  10. DOCUSATE SODIUM [Concomitant]
     Active Substance: DOCUSATE SODIUM
  11. ONDANSETRON [Concomitant]
     Active Substance: ONDANSETRON
  12. FERROUS SULFATE [Concomitant]
     Active Substance: FERROUS SULFATE
  13. LOSARTAN [Concomitant]
     Active Substance: LOSARTAN
  14. ATENOLOL [Concomitant]
     Active Substance: ATENOLOL

REACTIONS (1)
  - Hospice care [None]

NARRATIVE: CASE EVENT DATE: 20211101
